FAERS Safety Report 5781369-2 (Version None)
Quarter: 2008Q2

REPORT INFORMATION
  Report Type: 
  Country: None (occurrence: None)
  Receive Date: 20080619
  Receipt Date: 20070524
  Transmission Date: 20081010
  Serious: Yes (Other)
  Sender: FDA-Public Use
  Company Number: FDB-2007-010

PATIENT
  Age: 50 Year
  Sex: Female

DRUGS (2)
  1. CIS-SULFUR COLLOID [Suspect]
     Indication: SCAN LYMPH NODES
     Dosage: 0.85MCI, INTRAVENOUS, 4 INJECTION SITES
     Route: 042
     Dates: start: 20070508
  2. CIS-SULFUR COLLOID [Suspect]
     Indication: SCAN LYMPH NODES
     Dosage: 0.85MCI, INTRAVENOUS, 4 INJECTION SITES
     Route: 042
     Dates: start: 20070515

REACTIONS (3)
  - INJECTION SITE IRRITATION [None]
  - INJECTION SITE SCAB [None]
  - INJECTION SITE SWELLING [None]
